FAERS Safety Report 14995414 (Version 2)
Quarter: 2018Q4

REPORT INFORMATION
  Report Type: Spontaneous
  Country: US (occurrence: US)
  Receive Date: 20180611
  Receipt Date: 20181002
  Transmission Date: 20190204
  Serious: Yes (Other)
  Sender: FDA-Public Use
  Company Number: US-SA-2018SA151444

PATIENT
  Age: 49 Year
  Sex: Female
  Weight: 62.59 kg

DRUGS (9)
  1. EXEMESTANE. [Concomitant]
     Active Substance: EXEMESTANE
  2. NEOSAR [Concomitant]
     Active Substance: CYCLOPHOSPHAMIDE
  3. TAMOXIFEN [Concomitant]
     Active Substance: TAMOXIFEN
  4. PROCHLORPERAZINE. [Concomitant]
     Active Substance: PROCHLORPERAZINE
  5. ZOFRAN [ONDANSETRON] [Concomitant]
  6. ANASTROZOLE. [Concomitant]
     Active Substance: ANASTROZOLE
  7. NEULASTA [Concomitant]
     Active Substance: PEGFILGRASTIM
  8. TAXOTERE [Suspect]
     Active Substance: DOCETAXEL
     Dosage: 126 UNK
     Route: 042
     Dates: start: 20140219, end: 20140219
  9. TAXOTERE [Suspect]
     Active Substance: DOCETAXEL
     Indication: BREAST CANCER FEMALE
     Dosage: 126 UNK, Q3W
     Route: 042
     Dates: start: 20131108, end: 20131108

REACTIONS (2)
  - Alopecia [Recovering/Resolving]
  - Psychological trauma [Unknown]

NARRATIVE: CASE EVENT DATE: 20131126
